FAERS Safety Report 17487444 (Version 6)
Quarter: 2020Q4

REPORT INFORMATION
  Report Type: Spontaneous
  Country: US (occurrence: US)
  Receive Date: 20200303
  Receipt Date: 20201214
  Transmission Date: 20210113
  Serious: Yes (Other)
  Sender: FDA-Public Use
  Company Number: US-PFIZER INC-2020092433

PATIENT
  Age: 6 Year
  Sex: Male

DRUGS (2)
  1. BENEFIX [Suspect]
     Active Substance: COAGULATION FACTOR IX RECOMBINANT HUMAN\ISOPROPYL ALCOHOL
     Indication: HAEMORRHAGE
     Dosage: 2450 UNITS (+5%) = 100U/KG ONCE DAILY FOR BLEEDS ON DEMAND
  2. BENEFIX [Suspect]
     Active Substance: COAGULATION FACTOR IX RECOMBINANT HUMAN\ISOPROPYL ALCOHOL
     Dosage: 2800 UNITS (+5%) = 100 UL/KG ON DEMAND FOR BLEEDS

REACTIONS (4)
  - Epistaxis [Unknown]
  - Haematoma [Unknown]
  - Haemorrhage [Unknown]
  - Nasal injury [Unknown]
